FAERS Safety Report 4712127-5 (Version None)
Quarter: 2005Q3

REPORT INFORMATION
  Report Type: 
  Country: None (occurrence: None)
  Receive Date: 20050712
  Receipt Date: 20050701
  Transmission Date: 20060218
  Serious: Yes (Other)
  Sender: FDA-Public Use
  Company Number: 200515504US

PATIENT
  Sex: Male
  Weight: 79.5 kg

DRUGS (1)
  1. LANTUS [Suspect]
     Indication: DIABETES MELLITUS
     Dosage: DOSE UNIT: UNITS
     Route: 058
     Dates: start: 20050630, end: 20050630

REACTIONS (7)
  - BLOOD GLUCOSE INCREASED [None]
  - HYPOAESTHESIA [None]
  - INJECTION SITE REACTION [None]
  - MYALGIA [None]
  - NAUSEA [None]
  - SOMNOLENCE [None]
  - VISION BLURRED [None]
